FAERS Safety Report 4434451-6 (Version None)
Quarter: 2004Q3

REPORT INFORMATION
  Report Type: 
  Country: None (occurrence: None)
  Receive Date: 20040726
  Receipt Date: 20040430
  Transmission Date: 20050211
  Serious: No
  Sender: FDA-Public Use
  Company Number: USA040259379

PATIENT
  Age: 74 Year
  Sex: Female
  Weight: 55 kg

DRUGS (10)
  1. FORTEO [Suspect]
     Indication: ARTHROPATHY
     Dosage: 20 UG/1 DAY
     Dates: start: 20031203
  2. FORTEO [Suspect]
     Indication: FRACTURE
     Dosage: 20 UG/1 DAY
     Dates: start: 20031203
  3. FOSAMAX [Concomitant]
  4. ZANTAC [Concomitant]
  5. ATENOLOL [Concomitant]
  6. FLUOXETINE [Concomitant]
  7. METHOTREXATE [Concomitant]
  8. ACCUPRIL [Concomitant]
  9. DICLOFENAC [Concomitant]
  10. HYDROCODONE [Concomitant]

REACTIONS (5)
  - ANOREXIA [None]
  - NAUSEA [None]
  - UMBILICAL HERNIA [None]
  - VOMITING [None]
  - WEIGHT DECREASED [None]
